FAERS Safety Report 4369935-2 (Version None)
Quarter: 2004Q2

REPORT INFORMATION
  Report Type: 
  Country: None (occurrence: None)
  Receive Date: 20040527
  Receipt Date: 20040512
  Transmission Date: 20050107
  Serious: Yes (Death, Other)
  Sender: FDA-Public Use
  Company Number: DE_040513589

PATIENT
  Age: 45 Year
  Sex: Male

DRUGS (3)
  1. GEMCITABINE HYDROCHLORIDE               (GEMCITABINE) [Suspect]
     Indication: SQUAMOUS CELL CARCINOMA
     Dosage: 1000 MG/M2 OTHER
     Route: 042
     Dates: start: 19980701, end: 20000501
  2. RADIATION THERAPY [Concomitant]
  3. CILENGITIDE [Concomitant]

REACTIONS (4)
  - HAEMATOTOXICITY [None]
  - HAEMORRHAGIC DIATHESIS [None]
  - MALIGNANT NEOPLASM PROGRESSION [None]
  - NEOPLASM [None]
